FAERS Safety Report 25534790 (Version 2)
Quarter: 2025Q3

REPORT INFORMATION
  Report Type: Spontaneous
  Country: CA (occurrence: CA)
  Receive Date: 20250709
  Receipt Date: 20250904
  Transmission Date: 20251021
  Serious: Yes (Other)
  Sender: PFIZER
  Company Number: CA-PFIZER INC-202500135909

PATIENT
  Age: 63 Year
  Sex: Male

DRUGS (2)
  1. SOMATROPIN [Suspect]
     Active Substance: SOMATROPIN
     Indication: Growth hormone deficiency
     Dosage: 0.3 MG, ONCE EVERYDAY (300 MCG, 1X/DAY)
     Route: 058
     Dates: start: 20250702
  2. SOMATROPIN [Suspect]
     Active Substance: SOMATROPIN
     Dosage: 0.3 MG, ONCE EVERYDAY (300 MCG, 1X/DAY)
     Route: 058
     Dates: start: 20250703

REACTIONS (6)
  - Erectile dysfunction [Unknown]
  - Irritability [Unknown]
  - Photophobia [Unknown]
  - Hyperacusis [Unknown]
  - Parosmia [Unknown]
  - Headache [Unknown]

NARRATIVE: CASE EVENT DATE: 20250101
